FAERS Safety Report 12616328 (Version 2)
Quarter: 2017Q2

REPORT INFORMATION
  Report Type: Spontaneous
  Country: JP (occurrence: JP)
  Receive Date: 20160802
  Receipt Date: 20170602
  Transmission Date: 20170830
  Serious: Yes (Other)
  Sender: FDA-Public Use
  Company Number: JP-009507513-1608JPN000514

PATIENT

DRUGS (1)
  1. DIAZOXIDE CAPSULES 25 MG ^MSD^ [Suspect]
     Active Substance: DIAZOXIDE
     Indication: HYPERINSULINAEMIC HYPOGLYCAEMIA
     Dosage: DAILY DOSAGE UNKNOWN
     Route: 048

REACTIONS (1)
  - Circulatory collapse [Unknown]
